FAERS Safety Report 25368385 (Version 2)
Quarter: 2025Q2

REPORT INFORMATION
  Report Type: Spontaneous
  Country: US (occurrence: US)
  Receive Date: 20250528
  Receipt Date: 20250620
  Transmission Date: 20250717
  Serious: No
  Sender: MYLAN
  Company Number: US-MYLANLABS-2025M1044423

PATIENT
  Age: 27 Year
  Sex: Male

DRUGS (5)
  1. GEODON [Suspect]
     Active Substance: ZIPRASIDONE HYDROCHLORIDE\ZIPRASIDONE MESYLATE
     Indication: Product used for unknown indication
  2. INGREZZA [Suspect]
     Active Substance: VALBENAZINE DITOSYLATE
     Indication: Tardive dyskinesia
     Dosage: 40 MILLIGRAM, QD (DAILY)
     Dates: start: 20241005, end: 20241211
  3. INGREZZA [Suspect]
     Active Substance: VALBENAZINE DITOSYLATE
     Dosage: 60 MILLIGRAM, QD (DAILY)
     Dates: start: 20241212, end: 20250116
  4. INGREZZA [Suspect]
     Active Substance: VALBENAZINE DITOSYLATE
     Dosage: 80 MILLIGRAM, QD (DAILY)
     Dates: start: 20250117, end: 20250527
  5. INVEGA [Suspect]
     Active Substance: PALIPERIDONE
     Indication: Product used for unknown indication

REACTIONS (6)
  - Hyperhidrosis [Recovered/Resolved]
  - Diarrhoea [Recovered/Resolved]
  - Vomiting [Recovered/Resolved]
  - Insomnia [Recovered/Resolved]
  - Tremor [Recovered/Resolved]
  - Weight decreased [Recovered/Resolved]

NARRATIVE: CASE EVENT DATE: 20250401
